FAERS Safety Report 4621786-7 (Version None)
Quarter: 2005Q1

REPORT INFORMATION
  Report Type: 
  Country: None (occurrence: None)
  Receive Date: 20050329
  Receipt Date: 20050324
  Transmission Date: 20050727
  Serious: Yes (Life-Threatening, Hospitalization)
  Sender: FDA-Public Use
  Company Number: PHRM2005FR01130

PATIENT
  Age: 52 Year
  Sex: Male

DRUGS (1)
  1. TEGRETOL [Suspect]
     Indication: EPILEPSY
     Dosage: 32 G, ONCE/SINGLE
     Route: 048
     Dates: start: 20050301

REACTIONS (3)
  - CARDIAC ARREST [None]
  - INTENTIONAL MISUSE [None]
  - SUICIDE ATTEMPT [None]
